FAERS Safety Report 4675408-X (Version None)
Quarter: 2005Q2

REPORT INFORMATION
  Report Type: 
  Country: None (occurrence: None)
  Receive Date: 20050527
  Receipt Date: 20050224
  Transmission Date: 20051028
  Serious: No
  Sender: FDA-Public Use
  Company Number: US-BRISTOL-MYERS SQUIBB COMPANY-12875324

PATIENT
  Age: 5 Decade
  Sex: Female
  Weight: 73 kg

DRUGS (3)
  1. ABILIFY [Suspect]
     Indication: POST-TRAUMATIC STRESS DISORDER
  2. ABILIFY [Suspect]
     Indication: DEPRESSION
  3. WELLBUTRIN [Concomitant]

REACTIONS (1)
  - EYE SWELLING [None]
